FAERS Safety Report 25376765 (Version 1)
Quarter: 2025Q2

REPORT INFORMATION
  Report Type: Spontaneous
  Country: CN (occurrence: CN)
  Receive Date: 20250530
  Receipt Date: 20250530
  Transmission Date: 20250717
  Serious: Yes (Hospitalization, Other)
  Sender: ASTELLAS
  Company Number: CN-ASTELLAS-2025-AER-027999

PATIENT
  Age: 37 Year
  Sex: Male

DRUGS (4)
  1. PROGRAF [Suspect]
     Active Substance: TACROLIMUS
     Indication: Prophylaxis against transplant rejection
     Dosage: TACROLIMUS CAPSULES 3MG/TIME 2 TIMES/DAY
     Route: 048
     Dates: start: 20250114
  2. PROGRAF [Suspect]
     Active Substance: TACROLIMUS
     Dosage: TACROLIMUS TO 2.5MG/TIME, 2 TIMES/DAY
     Route: 048
     Dates: start: 20250312
  3. PROGRAF [Suspect]
     Active Substance: TACROLIMUS
     Dosage: TACROLIMUS TO 2 MG/TIME, 2 TIMES/DAY
     Route: 048
     Dates: start: 20250317, end: 20250324
  4. HERBALS [Suspect]
     Active Substance: HERBALS
     Indication: Prophylaxis against transplant rejection
     Route: 048
     Dates: start: 20250312, end: 20250324

REACTIONS (5)
  - Toxicity to various agents [Unknown]
  - Nephropathy toxic [Unknown]
  - Immunosuppressant drug level increased [Unknown]
  - Blood creatinine increased [Recovering/Resolving]
  - Drug interaction [Unknown]

NARRATIVE: CASE EVENT DATE: 20250309
